FAERS Safety Report 7969929-1 (Version None)
Quarter: 2011Q4

REPORT INFORMATION
  Report Type: 
  Country: None (occurrence: None)
  Receive Date: 20111122
  Receipt Date: 20110801
  Transmission Date: 20120403
  Serious: Yes (Other)
  Sender: FDA-Public Use
  Company Number: PHHY2011US61528

PATIENT
  Age: 44 Year
  Sex: Female

DRUGS (17)
  1. CLOBETASOL (CLOBETASOL) [Concomitant]
  2. BOTOX (BOTULINUM TOXIN TYPE A) [Concomitant]
  3. EPIPEN [Concomitant]
  4. BENZOYL PEROXIDE W/CLINDAMYCIN (BENZOYL PEROXIDE, CLINDAMYCIN) [Concomitant]
  5. UNISOM [Concomitant]
  6. GILENYA [Suspect]
     Indication: RELAPSING-REMITTING MULTIPLE SCLEROSIS
     Dosage: 0.5 MG, QD, ORAL, 0.5 MG, QD, ORAL
     Route: 048
     Dates: start: 20110225, end: 20110708
  7. MINOCYCLINE HCL [Concomitant]
  8. SYNTHROID [Concomitant]
  9. CORDRAN (FLUDROXYCORTIDE) [Concomitant]
  10. MULTIVITAMINS (ASCORBIC ACID, ERGOCALCIFEROL, FOLIC ACID, NICOTINAMIDE [Concomitant]
  11. RANITIDINE HYDROCHLORIDE [Concomitant]
  12. DECADRON [Suspect]
     Dosage: 4 MG, ORAL
     Route: 048
  13. CLARITIN-D [Concomitant]
  14. MOMETASONE FUROATE [Concomitant]
  15. ALLEGRA-D 12 HOUR [Concomitant]
  16. LYRICA [Concomitant]
  17. LYRICA [Concomitant]

REACTIONS (18)
  - EYELID PTOSIS [None]
  - BURNING SENSATION [None]
  - GLYCOSYLATED HAEMOGLOBIN INCREASED [None]
  - ABDOMINAL DISCOMFORT [None]
  - LYMPHOCYTE COUNT DECREASED [None]
  - HYPERHIDROSIS [None]
  - VISION BLURRED [None]
  - PERONEAL NERVE PALSY [None]
  - MULTIPLE SCLEROSIS RELAPSE [None]
  - INSOMNIA [None]
  - FACIAL SPASM [None]
  - CRANIAL NERVE DISORDER [None]
  - BLEPHAROSPASM [None]
  - HEMIPARESIS [None]
  - SHOULDER DEFORMITY [None]
  - VISUAL FIELD DEFECT [None]
  - HYPOAESTHESIA [None]
  - CONSTIPATION [None]
